FAERS Safety Report 9601175 (Version 2)
Quarter: 2013Q4

REPORT INFORMATION
  Report Type: Spontaneous
  Country: US (occurrence: US)
  Receive Date: 20131004
  Receipt Date: 20131004
  Transmission Date: 20140711
  Serious: No
  Sender: FDA-Public Use
  Company Number: US-AMGEN-USASP2013032695

PATIENT
  Age: 76 Year
  Sex: Male

DRUGS (2)
  1. ENBREL [Suspect]
     Indication: RHEUMATOID ARTHRITIS
     Dosage: 50 MG, QWK
     Route: 065
     Dates: start: 20120515, end: 201307
  2. ARAVA [Concomitant]
     Dosage: 20 MG, QD, FOR OVER SIX MONTHS

REACTIONS (5)
  - Contusion [Not Recovered/Not Resolved]
  - Inflammatory marker increased [Not Recovered/Not Resolved]
  - Chondrocalcinosis pyrophosphate [Recovered/Resolved]
  - Joint swelling [Recovered/Resolved]
  - Pain of skin [Not Recovered/Not Resolved]
